FAERS Safety Report 5449072-6 (Version None)
Quarter: 2007Q3

REPORT INFORMATION
  Report Type: 
  Country: None (occurrence: None)
  Receive Date: 20070911
  Receipt Date: 20070903
  Transmission Date: 20080115
  Serious: Yes (Disabling)
  Sender: FDA-Public Use
  Company Number: GB-BAUSCH-2007BL003148

PATIENT
  Age: 55 Year
  Sex: Female
  Weight: 100 kg

DRUGS (7)
  1. GENTAMICIN SULFATE [Suspect]
     Indication: ENDOCARDITIS STAPHYLOCOCCAL
     Route: 042
     Dates: start: 20070727, end: 20070801
  2. AMBAZONE [Concomitant]
     Indication: SYSTEMIC CANDIDA
     Route: 042
     Dates: start: 20070721
  3. CLINDAMYCIN HCL [Concomitant]
     Indication: TOXIC SHOCK SYNDROME STAPHYLOCOCCAL
     Route: 042
     Dates: end: 20070101
  4. FLUCLOXACILLIN [Concomitant]
     Indication: ENDOCARDITIS STAPHYLOCOCCAL
     Route: 042
     Dates: start: 20070715
  5. FUROSEMIDE [Concomitant]
     Indication: FLUID OVERLOAD
  6. RIFAMPICIN [Concomitant]
     Indication: ENDOCARDITIS
     Route: 042
     Dates: end: 20070714
  7. XIGRIS [Concomitant]
     Dates: end: 20070714

REACTIONS (2)
  - DEAFNESS [None]
  - OTOTOXICITY [None]
